FAERS Safety Report 23186616 (Version 2)
Quarter: 2023Q4

REPORT INFORMATION
  Report Type: Spontaneous
  Country: US (occurrence: US)
  Receive Date: 20231115
  Receipt Date: 20231211
  Transmission Date: 20240110
  Serious: No
  Sender: FDA-Public Use
  Company Number: US-SA-SAC20231113000397

PATIENT
  Age: 38 Year
  Sex: Female
  Weight: 63.5 kg

DRUGS (12)
  1. DUPIXENT [Suspect]
     Active Substance: DUPILUMAB
     Indication: Dermatitis atopic
     Dosage: 300MG, QOW
     Route: 058
     Dates: start: 20221024
  2. VITAMIN E [Concomitant]
     Active Substance: .ALPHA.-TOCOPHEROL
  3. ZINC [Concomitant]
     Active Substance: PYRITHIONE ZINC\ZINC\ZINC CHLORIDE
  4. VITAMIN C [Concomitant]
     Active Substance: ASCORBIC ACID
  5. VITAMIN D3 [Concomitant]
     Active Substance: CHOLECALCIFEROL
  6. GARLIC (DEODORIZED) [Concomitant]
  7. CLOBETASOL PROPIONATE [Concomitant]
     Active Substance: CLOBETASOL PROPIONATE
  8. COD LIVER OIL [Concomitant]
     Active Substance: COD LIVER OIL
  9. CALCIUM [Concomitant]
     Active Substance: CALCIUM
  10. FISH OIL [Concomitant]
     Active Substance: FISH OIL
  11. IRON [Concomitant]
     Active Substance: IRON
  12. VITAMIN A [Concomitant]
     Active Substance: VITAMIN A

REACTIONS (2)
  - Dermatitis atopic [Not Recovered/Not Resolved]
  - Exposure during pregnancy [Unknown]

NARRATIVE: CASE EVENT DATE: 20230101
